FAERS Safety Report 5832804-2 (Version None)
Quarter: 2008Q3

REPORT INFORMATION
  Report Type: 
  Country: None (occurrence: None)
  Receive Date: 20080804
  Receipt Date: 20080108
  Transmission Date: 20090109
  Serious: Yes (Hospitalization)
  Sender: FDA-Public Use
  Company Number: IT-ROCHE-540211

PATIENT
  Sex: Female

DRUGS (2)
  1. NAPROXEN SODIUM [Suspect]
     Indication: TOOTHACHE
     Route: 048
     Dates: start: 20071223, end: 20071227
  2. ZIMOX (AMOXICILLIN) [Suspect]
     Indication: TOOTHACHE
     Route: 048
     Dates: start: 20071223, end: 20071227

REACTIONS (1)
  - LARYNGEAL OEDEMA [None]
